FAERS Safety Report 21165913 (Version 1)
Quarter: 2022Q3

REPORT INFORMATION
  Report Type: Spontaneous
  Country: CN (occurrence: CN)
  Receive Date: 20220803
  Receipt Date: 20220803
  Transmission Date: 20221027
  Serious: Yes (Other)
  Sender: FDA-Public Use
  Company Number: CN-NOVARTISPH-NVSC2022CN173715

PATIENT
  Age: 58 Year
  Sex: Female
  Weight: 58 kg

DRUGS (6)
  1. ZOLEDRONIC ACID [Suspect]
     Active Substance: ZOLEDRONIC ACID
     Indication: Osteoporosis postmenopausal
     Dosage: 100 ML, QD (100 MG IVGTT ONCE)
     Route: 041
     Dates: start: 20220717, end: 20220717
  2. METHYLCOBALAMIN [Concomitant]
     Active Substance: METHYLCOBALAMIN
     Indication: Sciatica
     Dosage: 1.5 MG, QD (1.5 IVGTT QD)
     Route: 041
     Dates: start: 20220708, end: 20220722
  3. CALCIUM CARBONATE [Concomitant]
     Active Substance: CALCIUM CARBONATE
     Indication: Osteoporosis postmenopausal
     Dosage: 0.5 G, QD
     Route: 048
     Dates: start: 20220712, end: 20220722
  4. CALCITRIOL [Concomitant]
     Active Substance: CALCITRIOL
     Indication: Osteoporosis postmenopausal
     Dosage: 0.25 UG, QD
     Route: 048
     Dates: start: 20220712, end: 20220722
  5. MENATETRENONE [Concomitant]
     Active Substance: MENATETRENONE
     Indication: Osteoporosis postmenopausal
     Dosage: 15 MG, TID
     Route: 048
     Dates: start: 20220712, end: 20220722
  6. SODIUM CHLORIDE [Concomitant]
     Active Substance: SODIUM CHLORIDE
     Indication: Fluid replacement
     Dosage: 100 ML, QD
     Route: 041
     Dates: start: 20220708, end: 20220722

REACTIONS (1)
  - Hyperpyrexia [Recovered/Resolved]

NARRATIVE: CASE EVENT DATE: 20220718
